FAERS Safety Report 7484658-9 (Version None)
Quarter: 2011Q2

REPORT INFORMATION
  Report Type: 
  Country: None (occurrence: None)
  Receive Date: 20110503
  Receipt Date: 20110421
  Transmission Date: 20111010
  Serious: Yes (Hospitalization)
  Sender: FDA-Public Use
  Company Number: US-145182

PATIENT
  Sex: Female

DRUGS (1)
  1. WINRHO SDF LIQUID [Suspect]
     Indication: IDIOPATHIC THROMBOCYTOPENIC PURPURA
     Dates: start: 20110211, end: 20110211

REACTIONS (6)
  - DYSSTASIA [None]
  - PLATELET COUNT INCREASED [None]
  - CHROMATURIA [None]
  - ANAEMIA [None]
  - ASTHENIA [None]
  - DRUG EFFECT DECREASED [None]
